FAERS Safety Report 9733756 (Version 1)
Quarter: 2013Q4

REPORT INFORMATION
  Report Type: Spontaneous
  Country: FR (occurrence: FR)
  Receive Date: 20131205
  Receipt Date: 20131205
  Transmission Date: 20140711
  Serious: Yes (Hospitalization, Other)
  Sender: FDA-Public Use
  Company Number: FR-TEVA-446520ISR

PATIENT
  Age: 32 Year
  Sex: Female

DRUGS (1)
  1. ANTADYS [Suspect]
     Indication: DYSMENORRHOEA
     Dosage: 3 DOSAGE FORMS DAILY;
     Route: 048
     Dates: start: 2000

REACTIONS (2)
  - Renal failure acute [Recovered/Resolved with Sequelae]
  - Salpingitis [Recovered/Resolved with Sequelae]
